FAERS Safety Report 6475276-X (Version None)
Quarter: 2009Q4

REPORT INFORMATION
  Report Type: 
  Country: None (occurrence: None)
  Receive Date: 20091204
  Receipt Date: 20090701
  Transmission Date: 20100525
  Serious: Yes (Hospitalization)
  Sender: FDA-Public Use
  Company Number: US-ELI_LILLY_AND_COMPANY-US200907001438

PATIENT
  Sex: Male
  Weight: 102.4 kg

DRUGS (7)
  1. BYETTA [Suspect]
     Indication: TYPE 2 DIABETES MELLITUS
     Dosage: 5 UG, UNK
     Route: 058
     Dates: start: 20051001, end: 20051101
  2. BYETTA [Suspect]
     Dosage: 10 UG, 2/D
     Route: 058
     Dates: start: 20051101, end: 20080901
  3. BYETTA [Suspect]
     Dosage: 10 UG, 2/D
     Route: 058
     Dates: start: 20090601
  4. SLOW-FE [Concomitant]
  5. LISINOPRIL [Concomitant]
     Indication: BLOOD PRESSURE INCREASED
  6. SINGULAIR [Concomitant]
     Indication: HYPERSENSITIVITY
  7. ASPIRIN [Concomitant]
     Dosage: 81 MG, DAILY (1/D)

REACTIONS (7)
  - ABDOMINAL MASS [None]
  - BLOOD URINE PRESENT [None]
  - DIARRHOEA [None]
  - HAEMATOCHEZIA [None]
  - MALAISE [None]
  - NEOPLASM MALIGNANT [None]
  - OFF LABEL USE [None]
